FAERS Safety Report 9184782 (Version 3)
Quarter: 2013Q2

REPORT INFORMATION
  Report Type: Spontaneous
  Country: US (occurrence: US)
  Receive Date: 20130325
  Receipt Date: 20130409
  Transmission Date: 20140414
  Serious: Yes (Hospitalization)
  Sender: FDA-Public Use
  Company Number: US-ALEXION PHARMACEUTICALS INC.-A201300495

PATIENT
  Age: 27 Year
  Sex: Male

DRUGS (1)
  1. SOLIRIS 300MG [Suspect]
     Indication: PAROXYSMAL NOCTURNAL HAEMOGLOBINURIA
     Dosage: UNK
     Route: 042
     Dates: end: 20130301

REACTIONS (10)
  - Dysphagia [Unknown]
  - Chromaturia [Unknown]
  - Chest pain [Unknown]
  - Diarrhoea [Unknown]
  - Vomiting [Unknown]
  - Haemoglobin decreased [Unknown]
  - Abdominal pain [Unknown]
  - Malaise [Unknown]
  - Pyrexia [Unknown]
  - Haemolysis [Unknown]
